APPROVED DRUG PRODUCT: RANITIDINE HYDROCHLORIDE
Active Ingredient: RANITIDINE HYDROCHLORIDE
Strength: EQ 25MG BASE/ML
Dosage Form/Route: INJECTABLE;INJECTION
Application: A074777 | Product #001
Applicant: HIKMA PHARMACEUTICALS USA INC
Approved: Mar 2, 2005 | RLD: No | RS: No | Type: DISCN